FAERS Safety Report 22119837 (Version 1)
Quarter: 2023Q1

REPORT INFORMATION
  Report Type: Spontaneous
  Country: US (occurrence: None)
  Receive Date: 20230320
  Receipt Date: 20230320
  Transmission Date: 20230418
  Serious: Yes (Hospitalization)
  Sender: FDA-Public Use
  Company Number: None

PATIENT
  Age: 55 Year
  Sex: Male
  Weight: 81.9 kg

DRUGS (1)
  1. ZOLEDRONIC ACID [Suspect]
     Active Substance: ZOLEDRONIC ACID
     Indication: Osteoporosis
     Dosage: OTHER FREQUENCY : ANNUAL;?
     Route: 042
     Dates: start: 20230301, end: 20230301

REACTIONS (12)
  - Inflammation [None]
  - Adverse drug reaction [None]
  - Pleural effusion [None]
  - Pericardial effusion [None]
  - Pyrexia [None]
  - Red blood cell sedimentation rate increased [None]
  - Leukocytosis [None]
  - Hypertransaminasaemia [None]
  - Musculoskeletal pain [None]
  - C-reactive protein increased [None]
  - Serum ferritin increased [None]
  - Anaemia [None]

NARRATIVE: CASE EVENT DATE: 20230301
